FAERS Safety Report 17338489 (Version 1)
Quarter: 2020Q1

REPORT INFORMATION
  Report Type: Spontaneous
  Country: IN (occurrence: IN)
  Receive Date: 20200129
  Receipt Date: 20200129
  Transmission Date: 20200409
  Serious: Yes (Other)
  Sender: FDA-Public Use
  Company Number: NVSC2020IN018368

PATIENT
  Age: 36 Year
  Sex: Female

DRUGS (1)
  1. METHYLPREDNISOLONE. [Suspect]
     Active Substance: METHYLPREDNISOLONE
     Indication: CEREBELLAR ATAXIA
     Dosage: UNK
     Route: 065

REACTIONS (3)
  - Diabetic ketosis [Unknown]
  - Condition aggravated [Unknown]
  - Product used for unknown indication [Unknown]
